FAERS Safety Report 24425180 (Version 1)
Quarter: 2024Q4

REPORT INFORMATION
  Report Type: Spontaneous
  Country: US (occurrence: US)
  Receive Date: 20241010
  Receipt Date: 20241010
  Transmission Date: 20250114
  Serious: Yes (Death, Other)
  Sender: AMGEN
  Company Number: US-AMGEN-USASP2024196944

PATIENT

DRUGS (3)
  1. RITUXIMAB [Suspect]
     Active Substance: RITUXIMAB
     Indication: Autoimmune haemolytic anaemia
     Dosage: UNK
     Route: 065
  2. IBRUTINIB [Concomitant]
     Active Substance: IBRUTINIB
     Dosage: UNK
  3. DEXAMETHASONE [Concomitant]
     Active Substance: DEXAMETHASONE
     Indication: COVID-19
     Dosage: UNK

REACTIONS (7)
  - Death [Fatal]
  - COVID-19 pneumonia [Unknown]
  - Neutropenia [Unknown]
  - Lymphopenia [Unknown]
  - Off label use [Unknown]
  - COVID-19 [Unknown]
  - Blood immunoglobulin G decreased [Unknown]
